FAERS Safety Report 8217871-3 (Version None)
Quarter: 2012Q1

REPORT INFORMATION
  Report Type: 
  Country: None (occurrence: None)
  Receive Date: 20120319
  Receipt Date: 20120224
  Transmission Date: 20120608
  Serious: Yes (Hospitalization)
  Sender: FDA-Public Use
  Company Number: JP-BRISTOL-MYERS SQUIBB COMPANY-16371544

PATIENT
  Age: 63 Year
  Sex: Male
  Weight: 54 kg

DRUGS (4)
  1. ARIPIPRAZOLE [Suspect]
     Indication: SCHIZOPHRENIA
     Route: 030
     Dates: start: 20110202, end: 20120106
  2. BROTIZOLAM [Concomitant]
     Dosage: TABS
     Dates: start: 20101210
  3. ABILIFY [Suspect]
     Indication: SCHIZOPHRENIA
     Dosage: 16JUL2006-09DEC2010
     Route: 048
     Dates: start: 20101210, end: 20120202
  4. PLACEBO [Suspect]
     Indication: SCHIZOPHRENIA
     Dates: start: 20110202, end: 20120106

REACTIONS (2)
  - CONVERSION DISORDER [None]
  - DIZZINESS [None]
